FAERS Safety Report 5840210-X (Version None)
Quarter: 2008Q3

REPORT INFORMATION
  Report Type: 
  Country: None (occurrence: None)
  Receive Date: 20080811
  Receipt Date: 20080729
  Transmission Date: 20090109
  Serious: No
  Sender: FDA-Public Use
  Company Number: US-ELI_LILLY_AND_COMPANY-US200804005689

PATIENT
  Sex: Male

DRUGS (5)
  1. CIALIS [Suspect]
     Dosage: 20 MG, UNK
  2. LEVOXYL [Concomitant]
     Indication: THYROID DISORDER
  3. TRAMADOL HCL [Concomitant]
  4. PROTONIX [Concomitant]
  5. VITAMIN TAB [Concomitant]

REACTIONS (1)
  - VISION BLURRED [None]
